FAERS Safety Report 10251691 (Version 1)
Quarter: 2014Q2

REPORT INFORMATION
  Report Type: Spontaneous
  Country: US (occurrence: US)
  Receive Date: 20140623
  Receipt Date: 20140623
  Transmission Date: 20141212
  Serious: No
  Sender: FDA-Public Use
  Company Number: US-BIOGENIDEC-2014BI058157

PATIENT
  Sex: Female

DRUGS (1)
  1. AVONEX [Suspect]
     Indication: MULTIPLE SCLEROSIS
     Route: 030
     Dates: start: 20080808

REACTIONS (7)
  - Overweight [Not Recovered/Not Resolved]
  - Balance disorder [Unknown]
  - Underdose [Unknown]
  - Hypoaesthesia [Not Recovered/Not Resolved]
  - General symptom [Unknown]
  - Pain [Unknown]
  - Fatigue [Unknown]
